FAERS Safety Report 17576548 (Version 1)
Quarter: 2020Q1

REPORT INFORMATION
  Report Type: Spontaneous
  Country: SE (occurrence: SE)
  Receive Date: 20200324
  Receipt Date: 20200324
  Transmission Date: 20200409
  Serious: Yes (Other)
  Sender: FDA-Public Use
  Company Number: SE-MYLANLABS-2020M1029330

PATIENT
  Age: 62 Year
  Sex: Female

DRUGS (5)
  1. INFLIXIMAB [Suspect]
     Active Substance: INFLIXIMAB
     Dosage: (FIFTH INFLIXIMAB INFUSION)
     Dates: start: 200404
  2. INFLIXIMAB [Suspect]
     Active Substance: INFLIXIMAB
     Indication: RHEUMATOID ARTHRITIS
     Dosage: 200 MG, CYCLE,(THE SECOND INFUSION AFTER 2 WEEKS AND THE THIRD AFTER 6 WEEKS)
     Dates: start: 200311
  3. PREDNISOLONE. [Suspect]
     Active Substance: PREDNISOLONE
     Indication: RHEUMATOID ARTHRITIS
     Dosage: 5 MG, 1X/DAY
  4. METHOTREXATE. [Suspect]
     Active Substance: METHOTREXATE
     Indication: RHEUMATOID ARTHRITIS
     Dosage: 10 MG, WEEKLY
  5. INFLIXIMAB [Suspect]
     Active Substance: INFLIXIMAB
     Dosage: (FOURTH INFUSION OF INFLIXIMAB)
     Dates: start: 200402

REACTIONS (3)
  - Opportunistic infection [Unknown]
  - Therapeutic product effect decreased [Unknown]
  - Condition aggravated [Unknown]
